FAERS Safety Report 6694297-5 (Version None)
Quarter: 2010Q2

REPORT INFORMATION
  Report Type: 
  Country: None (occurrence: None)
  Receive Date: 20100423
  Receipt Date: 20100413
  Transmission Date: 20101027
  Serious: Yes (Hospitalization)
  Sender: FDA-Public Use
  Company Number: US-ALEXION-A201000421

PATIENT
  Sex: Female

DRUGS (1)
  1. SOLIRIS [Suspect]
     Dosage: UNK

REACTIONS (8)
  - ARTHRALGIA [None]
  - BLOOD IRON INCREASED [None]
  - CHROMATURIA [None]
  - EPISTAXIS [None]
  - FACIAL PAIN [None]
  - INFECTED CYST [None]
  - JOINT WARMTH [None]
  - SINUSITIS [None]
